FAERS Safety Report 8248049-5 (Version None)
Quarter: 2012Q1

REPORT INFORMATION
  Report Type: 
  Country: None (occurrence: None)
  Receive Date: 20120330
  Receipt Date: 20120326
  Transmission Date: 20120608
  Serious: No
  Sender: FDA-Public Use
  Company Number: US-PFIZER INC-2012077609

PATIENT
  Sex: Female
  Weight: 77.098 kg

DRUGS (3)
  1. EFFEXOR XR [Suspect]
     Indication: ANXIETY
     Dosage: 37.5 MG, DAILY
     Route: 048
     Dates: start: 20090101
  2. EFFEXOR XR [Suspect]
     Dosage: 37.5 MG, 3X/DAY
     Route: 048
  3. EFFEXOR XR [Suspect]
     Dosage: 37.5 MG, DAILY
     Route: 048

REACTIONS (6)
  - WITHDRAWAL SYNDROME [None]
  - HEADACHE [None]
  - MUSCULOSKELETAL STIFFNESS [None]
  - FEELING ABNORMAL [None]
  - PAIN [None]
  - MUSCLE SPASMS [None]
